FAERS Safety Report 25024313 (Version 1)
Quarter: 2025Q1

REPORT INFORMATION
  Report Type: Spontaneous
  Country: CL (occurrence: None)
  Receive Date: 20250226
  Receipt Date: 20250226
  Transmission Date: 20250409
  Serious: Yes (Disabling, Other)
  Sender: FDA-CTU
  Company Number: None

PATIENT
  Age: 69 Year
  Sex: Female

DRUGS (5)
  1. GADOLINIUM [Suspect]
     Active Substance: GADOLINIUM
     Indication: Magnetic resonance imaging
     Dates: start: 20240627, end: 20240627
  2. EUROCOR [Concomitant]
  3. TIADIS [Concomitant]
  4. CELEXCOXIB [Concomitant]
  5. PREGABALIN [Concomitant]
     Active Substance: PREGABALIN

REACTIONS (12)
  - Arterial injury [None]
  - Haemorrhage [None]
  - Dysgeusia [None]
  - Dysgeusia [None]
  - Dysgeusia [None]
  - Skin discolouration [None]
  - Tongue rough [None]
  - Urine odour abnormal [None]
  - Weight decreased [None]
  - Lipoatrophy [None]
  - Back disorder [None]
  - Fatigue [None]

NARRATIVE: CASE EVENT DATE: 20240627
